FAERS Safety Report 10949504 (Version 2)
Quarter: 2015Q2

REPORT INFORMATION
  Report Type: Spontaneous
  Country: US (occurrence: US)
  Receive Date: 20150324
  Receipt Date: 20150524
  Transmission Date: 20150821
  Serious: Yes (Other)
  Sender: FDA-Public Use
  Company Number: US-JNJFOC-20130414863

PATIENT
  Age: 77 Year
  Sex: Male
  Weight: 58.97 kg

DRUGS (4)
  1. ZYTIGA [Suspect]
     Active Substance: ABIRATERONE ACETATE
     Indication: PROSTATE CANCER
     Dosage: 250 MG X 4 = 1000 MG
     Route: 048
     Dates: start: 201302
  2. VITAMIN [Concomitant]
     Active Substance: VITAMINS
     Route: 065
  3. IRON [Concomitant]
     Active Substance: IRON
     Route: 065
  4. PREDNISONE. [Concomitant]
     Active Substance: PREDNISONE
     Route: 065
     Dates: start: 201302

REACTIONS (2)
  - Drug ineffective [Not Recovered/Not Resolved]
  - Prostatic specific antigen increased [Not Recovered/Not Resolved]

NARRATIVE: CASE EVENT DATE: 2013
